FAERS Safety Report 9305790 (Version 1)
Quarter: 2013Q2

REPORT INFORMATION
  Report Type: Spontaneous
  Country: US (occurrence: US)
  Receive Date: 20130523
  Receipt Date: 20130523
  Transmission Date: 20140414
  Serious: No
  Sender: FDA-Public Use
  Company Number: US-PFIZER INC-2013156045

PATIENT
  Age: 71 Year
  Sex: Male
  Weight: 68.03 kg

DRUGS (3)
  1. LIPITOR [Suspect]
     Indication: BLOOD CHOLESTEROL INCREASED
     Dosage: 40 MG, 1X/DAY
     Route: 048
     Dates: start: 1992
  2. PLAVIX [Concomitant]
     Indication: ANTICOAGULANT THERAPY
     Dosage: 75 MG, 1X/DAY
  3. ASPIRIN [Concomitant]
     Dosage: 81 MG, 1X/DAY

REACTIONS (1)
  - Blood glucose increased [Recovered/Resolved]
